FAERS Safety Report 4714289-2 (Version None)
Quarter: 2005Q3

REPORT INFORMATION
  Report Type: 
  Country: None (occurrence: None)
  Receive Date: 20050714
  Receipt Date: 20050616
  Transmission Date: 20060218
  Serious: Yes (Life-Threatening, Hospitalization, Other)
  Sender: FDA-Public Use
  Company Number: DE-MERCK-0506DEU00157

PATIENT
  Age: 84 Year
  Sex: Female

DRUGS (11)
  1. FOSAMAX [Suspect]
     Indication: OSTEOPOROSIS
     Route: 048
     Dates: start: 20050317, end: 20050501
  2. FOSAMAX [Suspect]
     Indication: SPINAL FRACTURE
     Route: 048
     Dates: start: 20050317, end: 20050501
  3. METOPROLOL TARTRATE [Concomitant]
     Route: 065
  4. ASCORBIC ACID AND VITAMIN B COMPLEX [Concomitant]
     Route: 065
  5. ZINC (UNSPECIFIED) [Concomitant]
     Route: 065
  6. ENALAPRIL MALEATE [Concomitant]
     Route: 065
  7. ESOMEPRAZOLE MAGNESIUM [Concomitant]
     Route: 065
  8. LERCANIDIPINE HYDROCHLORIDE [Concomitant]
     Route: 065
  9. ACETAMINOPHEN AND CODEINE [Concomitant]
     Route: 065
  10. TRUSOPT [Concomitant]
     Route: 065
  11. DIMENHYDRINATE [Concomitant]
     Route: 065

REACTIONS (6)
  - FALL [None]
  - HIATUS HERNIA [None]
  - LACUNAR INFARCTION [None]
  - NEPHROGENIC ANAEMIA [None]
  - PLASMACYTOMA [None]
  - RENAL FAILURE ACUTE [None]
